FAERS Safety Report 7879700-7 (Version None)
Quarter: 2011Q4

REPORT INFORMATION
  Report Type: 
  Country: None (occurrence: None)
  Receive Date: 20111101
  Receipt Date: 20111027
  Transmission Date: 20120403
  Serious: No
  Sender: FDA-Public Use
  Company Number: US-ABBOTT-11P-163-0869394-00

PATIENT
  Sex: Male

DRUGS (2)
  1. CLARITHROMYCIN [Suspect]
     Route: 048
     Dates: start: 20110728, end: 20110806
  2. CLARITHROMYCIN [Suspect]
     Indication: RASH
     Route: 048
     Dates: start: 20110728, end: 20110806

REACTIONS (3)
  - WEIGHT DECREASED [None]
  - NAUSEA [None]
  - DIARRHOEA [None]
